FAERS Safety Report 25194474 (Version 1)
Quarter: 2025Q2

REPORT INFORMATION
  Report Type: Spontaneous
  Country: US (occurrence: US)
  Receive Date: 20250414
  Receipt Date: 20250414
  Transmission Date: 20250716
  Serious: Yes (Other)
  Sender: STAQ PHARMA - No Location Specified
  Company Number: US-STAQ Pharma, Inc-2174861

PATIENT
  Age: 54 Year
  Sex: Male
  Weight: 87.273 kg

DRUGS (1)
  1. ROCURONIUM BROMIDE [Suspect]
     Active Substance: ROCURONIUM BROMIDE
     Indication: Renal transplant
     Dates: start: 20250330, end: 20250330

REACTIONS (1)
  - Therapeutic response decreased [Recovered/Resolved]

NARRATIVE: CASE EVENT DATE: 20250330
